FAERS Safety Report 11409610 (Version 1)
Quarter: 2015Q3

REPORT INFORMATION
  Report Type: Spontaneous
  Country: US (occurrence: None)
  Receive Date: 20150820
  Receipt Date: 20150820
  Transmission Date: 20151125
  Serious: No
  Sender: FDA-Public Use
  Company Number: None

PATIENT
  Age: 46 Year
  Sex: Female
  Weight: 53.98 kg

DRUGS (3)
  1. WOMAN^S DAILY VITAMIN [Concomitant]
  2. LEXAPRO [Concomitant]
     Active Substance: ESCITALOPRAM OXALATE
  3. FLUCONAZOLE. [Suspect]
     Active Substance: FLUCONAZOLE
     Route: 048

REACTIONS (7)
  - Stomatitis [None]
  - Gingival pain [None]
  - Dizziness [None]
  - Headache [None]
  - Oral mucosal blistering [None]
  - Gingival swelling [None]
  - Fatigue [None]

NARRATIVE: CASE EVENT DATE: 20150819
